FAERS Safety Report 8064899 (Version 4)
Quarter: 2014Q2

REPORT INFORMATION
  Report Type: Spontaneous
  Country: US (occurrence: US)
  Receive Date: 20110802
  Receipt Date: 20140611
  Transmission Date: 20141212
  Serious: Yes (Hospitalization)
  Sender: FDA-Public Use
  Company Number: US-GLAXOSMITHKLINE-A0871283A

PATIENT
  Sex: Male
  Weight: 104.5 kg

DRUGS (1)
  1. AVANDIA [Suspect]
     Indication: TYPE 2 DIABETES MELLITUS
     Dosage: 4MG TWICE PER DAY
     Route: 048
     Dates: start: 200105, end: 200305

REACTIONS (5)
  - Myocardial infarction [Recovering/Resolving]
  - Cardiomyopathy [Unknown]
  - Angina unstable [Unknown]
  - Cardiac failure congestive [Unknown]
  - Chest pain [Unknown]
